FAERS Safety Report 19215225 (Version 1)
Quarter: 2021Q2

REPORT INFORMATION
  Report Type: Spontaneous
  Country: BR (occurrence: BR)
  Receive Date: 20210505
  Receipt Date: 20210505
  Transmission Date: 20210717
  Serious: Yes (Death, Other)
  Sender: FDA-Public Use
  Company Number: BR-AMGEN-BRASP2021065161

PATIENT

DRUGS (4)
  1. IFOSFAMIDE. [Concomitant]
     Active Substance: IFOSFAMIDE
     Indication: SOFT TISSUE SARCOMA
     Dosage: 1.8 GRAM PER SQUARE METRE, ON DAYS 1?5 IN CYCLES 1 AND 3
     Route: 042
  2. FILGRASTIM [Suspect]
     Active Substance: FILGRASTIM
     Indication: NEUTROPENIA
     Dosage: 300 MICROGRAM, ON DAYS 6?10 OF CYCLES 1, AND 3
     Route: 058
  3. DOXORUBICIN [Concomitant]
     Active Substance: DOXORUBICIN
     Indication: SOFT TISSUE SARCOMA
     Dosage: 75 MILLIGRAM/SQ. METER, ON DAY 1 IN CYCLES 1, 2,3
     Route: 042
  4. MESNA. [Concomitant]
     Active Substance: MESNA
     Indication: SOFT TISSUE SARCOMA
     Dosage: UNK, ON DAYS 1?5

REACTIONS (10)
  - Nausea [Unknown]
  - Soft tissue sarcoma [Unknown]
  - Neoplasm [Unknown]
  - Therapeutic product effect incomplete [Unknown]
  - Fatigue [Unknown]
  - Vomiting [Unknown]
  - Wound infection [Unknown]
  - Mucosal inflammation [Unknown]
  - Alopecia [Unknown]
  - Metastatic neoplasm [Fatal]
